FAERS Safety Report 5602225-6 (Version None)
Quarter: 2008Q1

REPORT INFORMATION
  Report Type: 
  Country: None (occurrence: None)
  Receive Date: 20080125
  Receipt Date: 20080117
  Transmission Date: 20080703
  Serious: Yes (Hospitalization, Other)
  Sender: FDA-Public Use
  Company Number: PHBS2008BR01018

PATIENT
  Age: 30 Year
  Sex: Male

DRUGS (6)
  1. FORASEQ [Suspect]
     Indication: ASTHMA
     Dosage: 4-5 CAPS OF EACH
     Dates: start: 20050101
  2. MIFLONIDE [Suspect]
     Indication: ASTHMA
     Route: 065
  3. BEROTEC [Concomitant]
  4. ATROVENT [Concomitant]
  5. CORTISONE [Suspect]
  6. OXYGEN [Concomitant]

REACTIONS (5)
  - ARRHYTHMIA [None]
  - DIABETES MELLITUS [None]
  - DRUG INEFFECTIVE [None]
  - HYPERTENSION [None]
  - IMMUNE SYSTEM DISORDER [None]
